FAERS Safety Report 20921628 (Version 1)
Quarter: 2022Q2

REPORT INFORMATION
  Report Type: Report from Study
  Country: DE (occurrence: None)
  Receive Date: 20220606
  Receipt Date: 20220606
  Transmission Date: 20220720
  Serious: Yes (Hospitalization)
  Sender: FDA-Public Use
  Company Number: DE-ROCHE-3107927

PATIENT
  Age: 53 Year
  Sex: Female
  Weight: 70 kg

DRUGS (10)
  1. ATEZOLIZUMAB [Suspect]
     Active Substance: ATEZOLIZUMAB
     Indication: Breast cancer
     Dosage: DATE OF LAST DOSE PRIOR TO SAE: 14/APR/2022
     Route: 041
     Dates: start: 20220120
  2. PACLITAXEL [Suspect]
     Active Substance: PACLITAXEL
     Indication: Breast cancer
     Dosage: DATE OF LAST DOSE PRIOR TO SAE: 07/APR/2022
     Route: 042
     Dates: start: 20220120
  3. CARBOPLATIN [Suspect]
     Active Substance: CARBOPLATIN
     Indication: Breast cancer
     Dosage: DATE OF LAST DOSE PRIOR TO SAE: 07/APR/2022
     Route: 042
     Dates: start: 20220120
  4. EPIRUBICIN [Suspect]
     Active Substance: EPIRUBICIN
     Indication: Breast cancer
     Dosage: DATE OF LAST DOSE PRIOR TO SAE:14/APR/2022
     Route: 042
     Dates: start: 20220414
  5. CYCLOPHOSPHAMIDE [Suspect]
     Active Substance: CYCLOPHOSPHAMIDE
     Indication: Breast cancer
     Dosage: DATE OF LAST DOSE PRIOR TO SAE: 14/APR/2022
     Route: 042
     Dates: start: 20220414
  6. RIVAROXABAN [Concomitant]
     Active Substance: RIVAROXABAN
  7. CEFUROXIME [Concomitant]
     Active Substance: CEFUROXIME
     Dates: start: 20220422
  8. FONDAPARINUX [Concomitant]
     Active Substance: FONDAPARINUX
  9. PEGFILGRASTIM [Concomitant]
     Active Substance: PEGFILGRASTIM
     Dates: start: 20220407
  10. FILGRASTIM [Concomitant]
     Active Substance: FILGRASTIM
     Dates: start: 20220210, end: 20220406

REACTIONS (1)
  - Pyrexia [Not Recovered/Not Resolved]

NARRATIVE: CASE EVENT DATE: 20220426
